FAERS Safety Report 17719129 (Version 1)
Quarter: 2020Q2

REPORT INFORMATION
  Report Type: Report from Study
  Country: US (occurrence: US)
  Receive Date: 20200428
  Receipt Date: 20200428
  Transmission Date: 20200714
  Serious: Yes (Hospitalization, Other)
  Sender: FDA-Public Use
  Company Number: PHHY2015US107200

PATIENT
  Age: 62 Year
  Sex: Male
  Weight: 85.7 kg

DRUGS (3)
  1. BORTEZOMIB. [Suspect]
     Active Substance: BORTEZOMIB
     Indication: PLASMA CELL MYELOMA
     Dosage: 1.3 MG/M2, QW2
     Route: 065
     Dates: start: 20150316
  2. MAXIDEX [Suspect]
     Active Substance: DEXAMETHASONE
     Indication: PLASMA CELL MYELOMA
     Dosage: 20 MG, QW4
     Route: 048
     Dates: start: 20150316
  3. FARYDAK [Suspect]
     Active Substance: PANOBINOSTAT
     Indication: PLASMA CELL MYELOMA
     Dosage: 20 MG, QW3
     Route: 048
     Dates: start: 20150316

REACTIONS (4)
  - Clostridium difficile colitis [Recovered/Resolved]
  - Hypovolaemia [Recovered/Resolved]
  - Thrombocytopenia [Recovering/Resolving]
  - Hypotension [Recovered/Resolved]

NARRATIVE: CASE EVENT DATE: 20150417
